FAERS Safety Report 8430043-2 (Version None)
Quarter: 2012Q2

REPORT INFORMATION
  Report Type: 
  Country: None (occurrence: None)
  Receive Date: 20120323
  Receipt Date: 20111128
  Transmission Date: 20120825
  Serious: Yes (Disabling)
  Sender: FDA-Public Use
  Company Number: 163-21880-11083105

PATIENT
  Age: 72 Year
  Sex: Male
  Weight: 79.3795 kg

DRUGS (14)
  1. FLOMAX [Concomitant]
  2. MAGNESIUM (MAGNESIUM) [Concomitant]
  3. LIPITOR [Concomitant]
  4. DECADRON [Concomitant]
  5. SENNA (SENNA) [Concomitant]
  6. LENALIDOMIDE [Suspect]
     Indication: MULTIPLE MYELOMA
     Dosage: 10 MG, DAILY FOR THREE WEEKS; 4 WEEKS CYCLE, PO
     Route: 048
     Dates: start: 20110201, end: 20111001
  7. METHADONE HCL [Concomitant]
  8. CENTRUM (CENTRUM) [Concomitant]
  9. TRAVATAN [Concomitant]
  10. VITAMIN B6 [Concomitant]
  11. HYDROCODONE BITARTRATE [Concomitant]
  12. LIDODERM [Concomitant]
  13. WARFARIN SODIUM [Concomitant]
  14. OMEPRAZOLE [Concomitant]

REACTIONS (2)
  - HYPOAESTHESIA [None]
  - GAIT DISTURBANCE [None]
